FAERS Safety Report 5379564-X (Version None)
Quarter: 2007Q3

REPORT INFORMATION
  Report Type: 
  Country: None (occurrence: None)
  Receive Date: 20070703
  Receipt Date: 20070620
  Transmission Date: 20080115
  Serious: Yes (Death, Hospitalization)
  Sender: FDA-Public Use
  Company Number: 157821ISR

PATIENT
  Age: 86 Year
  Sex: Male

DRUGS (2)
  1. FLUOROURACIL [Suspect]
     Indication: RECTAL CANCER
  2. FOLIC ACID [Concomitant]

REACTIONS (4)
  - GASTROENTERITIS RADIATION [None]
  - INFECTION [None]
  - STRESS ULCER [None]
  - ULCER HAEMORRHAGE [None]
